FAERS Safety Report 14813605 (Version 1)
Quarter: 2018Q2

REPORT INFORMATION
  Report Type: Spontaneous
  Country: FR (occurrence: FR)
  Receive Date: 20180426
  Receipt Date: 20180426
  Transmission Date: 20180711
  Serious: Yes (Hospitalization)
  Sender: FDA-Public Use
  Company Number: FR-TEVA-2018-FR-886286

PATIENT
  Age: 80 Year
  Sex: Female
  Weight: 70 kg

DRUGS (6)
  1. PRAVASTATINE SODIQUE [Concomitant]
     Active Substance: PRAVASTATIN SODIUM
  2. DONEPEZIL BASE [Suspect]
     Active Substance: DONEPEZIL
     Indication: DEMENTIA ALZHEIMER^S TYPE
     Route: 048
  3. LANSOPRAZOLE. [Concomitant]
     Active Substance: LANSOPRAZOLE
  4. HYPERIUM [Concomitant]
     Active Substance: RILMENIDINE PHOSPHATE
  5. LOXEN L P 50 MG, G?LULE ? LIB?RATION PROLONG?E [Concomitant]
     Active Substance: NICARDIPINE HYDROCHLORIDE
  6. BIPRETERAX 10 MG/2,5 MG, COMPRIM? PELLICUL? [Concomitant]

REACTIONS (1)
  - Atrioventricular block complete [Recovered/Resolved with Sequelae]
